FAERS Safety Report 9361784 (Version 1)
Quarter: 2013Q2

REPORT INFORMATION
  Report Type: Spontaneous
  Country: US (occurrence: US)
  Receive Date: 20130621
  Receipt Date: 20130621
  Transmission Date: 20140414
  Serious: Yes (Other)
  Sender: FDA-Public Use
  Company Number: PHHY2013US062433

PATIENT
  Age: 50 Year
  Sex: Male

DRUGS (3)
  1. AMANTADINE [Suspect]
     Indication: PARKINSON^S DISEASE
     Dosage: UNK UKN, UNK
  2. AMANTADINE [Suspect]
     Dosage: 100 MG, BID
  3. AMANTADINE [Suspect]
     Dosage: UNK UKN, UNK

REACTIONS (5)
  - Eustachian tube patulous [Unknown]
  - Autophony [Unknown]
  - Dry throat [Unknown]
  - Mucosal dryness [Unknown]
  - Dry mouth [Unknown]
